FAERS Safety Report 4736939-7 (Version None)
Quarter: 2005Q3

REPORT INFORMATION
  Report Type: 
  Country: None (occurrence: None)
  Receive Date: 20050729
  Receipt Date: 20050523
  Transmission Date: 20060218
  Serious: Yes (Hospitalization)
  Sender: FDA-Public Use
  Company Number: 220303

PATIENT
  Age: 60 Year
  Sex: Male
  Weight: 102.0593 kg

DRUGS (1)
  1. NITROGLYCERIN [Suspect]
     Indication: ANGINA PECTORIS
     Dosage: TAB ORAL
     Route: 048
     Dates: start: 20050510

REACTIONS (1)
  - DRUG INEFFECTIVE [None]
